FAERS Safety Report 22209329 (Version 1)
Quarter: 2023Q2

REPORT INFORMATION
  Report Type: Report from Study
  Country: CO (occurrence: CO)
  Receive Date: 20230413
  Receipt Date: 20230413
  Transmission Date: 20230722
  Serious: Yes (Other)
  Sender: FDA-Public Use
  Company Number: CO-ABBVIE-4726377

PATIENT
  Sex: Female
  Weight: 59 kg

DRUGS (4)
  1. HUMIRA [Suspect]
     Active Substance: ADALIMUMAB
     Indication: Rheumatoid arthritis
     Route: 058
  2. HUMIRA [Suspect]
     Active Substance: ADALIMUMAB
  3. TRAMADOL [Concomitant]
     Active Substance: TRAMADOL
     Indication: Procedural pain
     Dosage: 10 MG 10 DROPS, LAST ADMIN DATE:2023, FREQUENCY TEXT: EVERY 8 HOURS AND GRADUALLY DECREASED
     Route: 048
     Dates: start: 202303
  4. ACETAMINOPHEN [Concomitant]
     Active Substance: ACETAMINOPHEN
     Indication: Knee operation
     Route: 048

REACTIONS (8)
  - Arthralgia [Recovering/Resolving]
  - Erythema [Recovering/Resolving]
  - Gait disturbance [Recovering/Resolving]
  - Inflammation [Recovering/Resolving]
  - Osteoarthritis [Recovering/Resolving]
  - Fibromyalgia [Recovered/Resolved]
  - Musculoskeletal discomfort [Recovering/Resolving]
  - Feeling hot [Recovering/Resolving]

NARRATIVE: CASE EVENT DATE: 20220101
